FAERS Safety Report 22624773 (Version 1)
Quarter: 2023Q2

REPORT INFORMATION
  Report Type: Spontaneous
  Country: IT (occurrence: None)
  Receive Date: 20230621
  Receipt Date: 20230621
  Transmission Date: 20230721
  Serious: Yes (Hospitalization)
  Sender: FDA-Public Use
  Company Number: None

PATIENT
  Age: 34 Year
  Sex: Female
  Weight: 53 kg

DRUGS (1)
  1. OCREVUS [Suspect]
     Active Substance: OCRELIZUMAB
     Indication: Relapsing-remitting multiple sclerosis
     Dosage: CONCENTRATE FOR SOLUTION FOR INFUSION
     Route: 065
     Dates: start: 20180715, end: 20220321

REACTIONS (1)
  - Encephalitis enteroviral [Recovered/Resolved]

NARRATIVE: CASE EVENT DATE: 20220723
